FAERS Safety Report 5644637-0 (Version None)
Quarter: 2008Q1

REPORT INFORMATION
  Report Type: 
  Country: None (occurrence: None)
  Receive Date: 20080229
  Receipt Date: 20070424
  Transmission Date: 20080703
  Serious: No
  Sender: FDA-Public Use
  Company Number: A0648543A

PATIENT
  Age: 36 Year
  Sex: Male

DRUGS (3)
  1. VALTREX [Suspect]
     Indication: HERPES VIRUS INFECTION
     Dosage: 500MG TWICE PER DAY
     Route: 048
     Dates: start: 20060504
  2. PRED FORTE EYEDROPS [Concomitant]
  3. ERYTHROMYCIN [Concomitant]

REACTIONS (3)
  - DEPRESSION [None]
  - HEADACHE [None]
  - LOSS OF LIBIDO [None]
